FAERS Safety Report 13142377 (Version 1)
Quarter: 2017Q1

REPORT INFORMATION
  Report Type: Spontaneous
  Country: JP (occurrence: JP)
  Receive Date: 20170124
  Receipt Date: 20170124
  Transmission Date: 20170428
  Serious: Yes (Hospitalization, Other)
  Sender: FDA-Public Use
  Company Number: JP-AMGEN-JPNSP2017010852

PATIENT

DRUGS (13)
  1. ZOPICLONE [Concomitant]
     Active Substance: ZOPICLONE
     Dosage: UNK
     Route: 048
     Dates: start: 20160725
  2. ENBREL [Suspect]
     Active Substance: ETANERCEPT
     Indication: RHEUMATOID ARTHRITIS
     Dosage: 25 MG, WEEKLY
     Route: 058
     Dates: start: 20160906, end: 20161011
  3. CARERAM [Suspect]
     Active Substance: IGURATIMOD
     Indication: RHEUMATOID ARTHRITIS
     Dosage: 50 MG, ONCE A DAY
     Route: 048
     Dates: start: 20160822, end: 20161018
  4. LOXONIN [Concomitant]
     Active Substance: LOXOPROFEN SODIUM
     Dosage: UNK
     Route: 048
     Dates: start: 20160822
  5. DIAZEPAM. [Concomitant]
     Active Substance: DIAZEPAM
     Dosage: UNK
     Dates: start: 20160725
  6. ARTIST [Concomitant]
     Active Substance: CARVEDILOL
     Dosage: UNK
     Route: 048
     Dates: start: 20160802
  7. PARIET [Concomitant]
     Active Substance: RABEPRAZOLE SODIUM
     Dosage: UNK
     Route: 048
     Dates: start: 20160803
  8. HALIZON [Concomitant]
     Active Substance: AMPHOTERICIN B
     Dosage: UNK
     Route: 048
     Dates: start: 20160706
  9. CRAVIT [Suspect]
     Active Substance: LEVOFLOXACIN
     Indication: PRODUCT USED FOR UNKNOWN INDICATION
     Dosage: 500 MG, ONCE A DAY
     Route: 048
     Dates: start: 20160927, end: 20161010
  10. EPADEL [Concomitant]
     Active Substance: ICOSAPENT
     Dosage: UNK
     Route: 048
     Dates: start: 20160702
  11. FLUCONAZOLE. [Concomitant]
     Active Substance: FLUCONAZOLE
     Dosage: UNK
     Dates: start: 20160813
  12. ITRACONAZOLE. [Concomitant]
     Active Substance: ITRACONAZOLE
     Dosage: UNK
     Dates: start: 20160629
  13. AMLODIN [Concomitant]
     Active Substance: AMLODIPINE BESYLATE
     Dosage: UNK
     Route: 048
     Dates: start: 20160729

REACTIONS (7)
  - Lip swelling [Unknown]
  - Eye pruritus [Unknown]
  - Erythema multiforme [Recovering/Resolving]
  - Ageusia [Unknown]
  - Oral pain [Recovering/Resolving]
  - Sleep disorder due to general medical condition, insomnia type [Unknown]
  - Abnormal sensation in eye [Unknown]

NARRATIVE: CASE EVENT DATE: 201610
